FAERS Safety Report 14684883 (Version 4)
Quarter: 2018Q2

REPORT INFORMATION
  Report Type: Report from Study
  Country: US (occurrence: US)
  Receive Date: 20180327
  Receipt Date: 20180614
  Transmission Date: 20180711
  Serious: Yes (Hospitalization)
  Sender: FDA-Public Use
  Company Number: US-CLOVIS ONCOLOGY-CLO-2018-000027

PATIENT
  Age: 57 Year
  Sex: Female

DRUGS (5)
  1. RUBRACA [Suspect]
     Active Substance: RUCAPARIB CAMSYLATE
     Dosage: 500MG IN AM/250MG IN PM
     Route: 048
     Dates: start: 201803, end: 201804
  2. RUBRACA [Suspect]
     Active Substance: RUCAPARIB CAMSYLATE
     Dosage: 300 MG BID
     Route: 048
     Dates: start: 201804, end: 20180413
  3. RUBRACA [Suspect]
     Active Substance: RUCAPARIB CAMSYLATE
     Dosage: 300 MG, BID
     Route: 048
     Dates: start: 20180402
  4. RUBRACA [Suspect]
     Active Substance: RUCAPARIB CAMSYLATE
     Dosage: 500 MG, BID
     Route: 048
     Dates: start: 201801, end: 201803
  5. RUBRACA [Suspect]
     Active Substance: RUCAPARIB CAMSYLATE
     Indication: OVARIAN CANCER
     Dosage: 600 MG, BID
     Route: 048
     Dates: start: 20180101, end: 201801

REACTIONS (18)
  - Vertigo [Not Recovered/Not Resolved]
  - Depression [Unknown]
  - Nausea [Unknown]
  - Headache [Unknown]
  - Neck pain [Unknown]
  - Dizziness [Not Recovered/Not Resolved]
  - Drug dose omission [Unknown]
  - Haemoglobin decreased [Unknown]
  - Musculoskeletal pain [Unknown]
  - Conjunctivitis [Unknown]
  - Extra dose administered [Unknown]
  - Palpitations [Unknown]
  - Dyspnoea [Unknown]
  - Eye discharge [Unknown]
  - Dysgeusia [Not Recovered/Not Resolved]
  - Liver function test increased [Unknown]
  - Fatigue [Not Recovered/Not Resolved]
  - Decreased appetite [Not Recovered/Not Resolved]

NARRATIVE: CASE EVENT DATE: 201801
